FAERS Safety Report 9431040 (Version 3)
Quarter: 2013Q3

REPORT INFORMATION
  Report Type: Spontaneous
  Country: US (occurrence: US)
  Receive Date: 20130730
  Receipt Date: 20130902
  Transmission Date: 20140515
  Serious: Yes (Hospitalization, Other)
  Sender: FDA-Public Use
  Company Number: US-PFIZER INC-2013217428

PATIENT
  Age: 39 Year
  Sex: Female

DRUGS (6)
  1. REVATIO [Suspect]
     Indication: PULMONARY ARTERIAL HYPERTENSION
     Dosage: 40 MG, 3X/DAY (20 MG 2 TABLETS THREE TIMES DAILY)
     Route: 048
     Dates: start: 20120201
  2. ALBUTEROL [Concomitant]
     Indication: ASTHMA
     Dosage: 90 MG, 4X/DAY (QID, PRN)
     Route: 055
  3. ASA [Concomitant]
     Dosage: UNK
  4. LASIX [Concomitant]
     Indication: OEDEMA
     Dosage: 80 MG, 1X/DAY
     Route: 048
  5. SPIRONOLACTONE [Concomitant]
     Indication: OEDEMA
     Dosage: 100 MG, 1X/DAY
     Route: 048
  6. AMBIEN [Concomitant]
     Indication: INSOMNIA
     Dosage: 10 MG, 1X/DAY
     Route: 048

REACTIONS (2)
  - Chest pain [Recovered/Resolved]
  - Off label use [Recovered/Resolved]
